FAERS Safety Report 21746154 (Version 1)
Quarter: 2022Q4

REPORT INFORMATION
  Report Type: Report from Study
  Country: US (occurrence: US)
  Receive Date: 20221219
  Receipt Date: 20221219
  Transmission Date: 20230113
  Serious: No
  Sender: FDA-Public Use
  Company Number: US-ABBVIE-4195222

PATIENT
  Sex: Female

DRUGS (6)
  1. SKYRIZI [Suspect]
     Active Substance: RISANKIZUMAB-RZAA
     Indication: Psoriasis
     Dosage: FORM STRENGTH: 150 MG
     Route: 058
  2. ESCITALOPRAM OXALATE 20 mg [Concomitant]
     Indication: Product used for unknown indication
     Dosage: FORM STRENGTH: 20 MG
     Route: 048
  3. ATORVASTATIN CALCIUM 20 mg [Concomitant]
     Indication: Product used for unknown indication
     Dosage: FORM STRENGTH: 20 MG
     Route: 048
  4. NEXIUM [Concomitant]
     Active Substance: ESOMEPRAZOLE MAGNESIUM
     Indication: Product used for unknown indication
     Dosage: FORM STRENGTH: 40 MG
     Route: 048
  5. BUSPIRONE HCL [Concomitant]
     Active Substance: BUSPIRONE HYDROCHLORIDE
     Indication: Product used for unknown indication
     Dosage: FORM STRENGTH: 10 MG
     Route: 048
  6. 5 mg Amlodipine besylate [Concomitant]
     Indication: Product used for unknown indication
     Dosage: FORM STRENGTH: 5 MG
     Route: 048

REACTIONS (1)
  - Tendon disorder [Not Recovered/Not Resolved]
